FAERS Safety Report 23004034 (Version 3)
Quarter: 2025Q4

REPORT INFORMATION
  Report Type: Spontaneous
  Country: US (occurrence: US)
  Receive Date: 20230928
  Receipt Date: 20251211
  Transmission Date: 20260119
  Serious: Yes (Disabling, Other)
  Sender: CYCLE PHARMACEUTICALS
  Company Number: US-CYCLE PHARMACEUTICALS LTD-2023-CYC-000078

PATIENT

DRUGS (2)
  1. NITYR [Suspect]
     Active Substance: NITISINONE
     Indication: Alkaptonuria
     Dosage: 2 MG, QD
     Route: 048
     Dates: start: 20230818, end: 20230917
  2. NITYR [Suspect]
     Active Substance: NITISINONE
     Dosage: 2 MG, QOD
     Route: 048
     Dates: start: 202309, end: 202507

REACTIONS (8)
  - Herpes ophthalmic [Not Recovered/Not Resolved]
  - Ulcerative keratitis [Recovered/Resolved]
  - Eye pain [Recovered/Resolved]
  - Alopecia [Recovered/Resolved]
  - Dry skin [Recovered/Resolved]
  - Pruritus [Recovered/Resolved]
  - Inappropriate schedule of product administration [Unknown]
  - Off label use [Unknown]

NARRATIVE: CASE EVENT DATE: 20230818
